FAERS Safety Report 8855588 (Version 1)
Quarter: 2012Q4

REPORT INFORMATION
  Report Type: 
  Country: US (occurrence: US)
  Receive Date: 20121023
  Receipt Date: 20121023
  Transmission Date: 20130627
  Serious: No
  Sender: FDA-Public Use
  Company Number: US-AMGEN-USASP2012059523

PATIENT
  Age: 73 Year
  Sex: Female
  Weight: 142 kg

DRUGS (9)
  1. ENBREL [Suspect]
     Indication: PRODUCT USED FOR UNKNOWN INDICATION
     Dosage: 50 mg, qwk
     Route: 058
  2. BENAZEPRIL [Concomitant]
     Dosage: 40 mg, UNK
  3. METOPROLOL TARTRATE [Concomitant]
     Dosage: 25 mg, UNK
  4. CRESTOR [Concomitant]
     Dosage: 10 mg, UNK
  5. ASA [Concomitant]
     Dosage: 81 mg, Low Dose Tab
  6. ZETIA [Concomitant]
     Dosage: 10 mg, UNK
  7. PEPCID AC [Concomitant]
     Dosage: 20 mg, UNK
  8. MULTIVITAMIN                       /00097801/ [Concomitant]
     Dosage: UNK
  9. LOMOTIL [Concomitant]
     Dosage: 2.5 mg, UNK

REACTIONS (2)
  - Injection site bruising [Unknown]
  - Fatigue [Unknown]
